FAERS Safety Report 18879851 (Version 1)
Quarter: 2021Q1

REPORT INFORMATION
  Report Type: Spontaneous
  Country: HU (occurrence: HU)
  Receive Date: 20210211
  Receipt Date: 20210211
  Transmission Date: 20210420
  Serious: Yes (Other)
  Sender: FDA-Public Use
  Company Number: HU-TEVA-2021-HU-1877876

PATIENT
  Age: 49 Year
  Sex: Female

DRUGS (13)
  1. ZOLADEX [Concomitant]
     Active Substance: GOSERELIN ACETATE
     Dosage: 3.6 MG
     Route: 058
  2. LETROX [Concomitant]
     Active Substance: LEVOTHYROXINE SODIUM
     Indication: THYROID DISORDER
     Dosage: 75 MICROGRAM
     Route: 048
  3. ONDANSETRON [Concomitant]
     Active Substance: ONDANSETRON
     Dosage: 8 MG
     Route: 042
  4. BISOBLOCK [Concomitant]
     Active Substance: BISOPROLOL FUMARATE
     Indication: ARRHYTHMIA
     Dosage: 2.5 MG
     Route: 048
  5. LENDIN [Concomitant]
     Route: 048
  6. CAPECITABINE. [Suspect]
     Active Substance: CAPECITABINE
     Indication: BREAST CANCER
     Route: 048
     Dates: start: 20200806, end: 20201002
  7. GEMCITABINE. [Suspect]
     Active Substance: GEMCITABINE
     Indication: BREAST CANCER
     Route: 042
     Dates: start: 20201209, end: 20201209
  8. VITAMIN D3 3000 NE BIOEXTRA [Concomitant]
     Route: 048
  9. PERJETA [Concomitant]
     Active Substance: PERTUZUMAB
     Dosage: 420 MG
     Route: 041
  10. FILGRASTIM [Concomitant]
     Active Substance: FILGRASTIM
     Indication: WHITE BLOOD CELL COUNT DECREASED
     Route: 058
  11. SOLU?MEDROL [Concomitant]
     Active Substance: METHYLPREDNISOLONE SODIUM SUCCINATE
     Dosage: 125 MG
     Route: 042
  12. PACLITAXEL. [Suspect]
     Active Substance: PACLITAXEL
     Indication: BREAST CANCER
     Dosage: 75 MG
     Route: 042
     Dates: start: 20200731, end: 20200731
  13. TRAZIMERA [Concomitant]
     Active Substance: TRASTUZUMAB-QYYP
     Dosage: 432 MG
     Route: 042

REACTIONS (2)
  - Skin exfoliation [Recovered/Resolved]
  - Rash erythematous [Recovered/Resolved]
